FAERS Safety Report 8055044-8 (Version None)
Quarter: 2012Q1

REPORT INFORMATION
  Report Type: 
  Country: None (occurrence: None)
  Receive Date: 20120119
  Receipt Date: 20120116
  Transmission Date: 20120608
  Serious: Yes (Death)
  Sender: FDA-Public Use
  Company Number: US-PFIZER INC-2012013054

PATIENT
  Sex: Male

DRUGS (1)
  1. SUTENT [Suspect]
     Indication: RENAL CANCER
     Dosage: 12.5 MG, 1X/DAY (3 CAPS DAILY)
     Dates: start: 20110606

REACTIONS (3)
  - MYOCARDIAL INFARCTION [None]
  - RENAL CANCER [None]
  - DISEASE PROGRESSION [None]
